FAERS Safety Report 22599547 (Version 1)
Quarter: 2023Q2

REPORT INFORMATION
  Report Type: Spontaneous
  Country: ES (occurrence: ES)
  Receive Date: 20230614
  Receipt Date: 20230614
  Transmission Date: 20230721
  Serious: Yes (Life-Threatening, Hospitalization, Other)
  Sender: FDA-Public Use
  Company Number: None

PATIENT
  Age: 15 Year
  Sex: Female
  Weight: 48 kg

DRUGS (2)
  1. ACETAMINOPHEN [Suspect]
     Active Substance: ACETAMINOPHEN
     Indication: Product used for unknown indication
     Dosage: 50 GRAM, 1 TOTAL (50 GRAMS IN SINGLE DOSE)
     Route: 048
     Dates: start: 20230516, end: 20230516
  2. ASPIRIN [Suspect]
     Active Substance: ASPIRIN
     Indication: Product used for unknown indication
     Dosage: 10 TABS,IT IS UNK IF 500MG OR 100MG IN SINGLE DOSE
     Route: 048
     Dates: start: 20230516, end: 20230516

REACTIONS (4)
  - Hypocoagulable state [Recovering/Resolving]
  - Hepatitis [Recovering/Resolving]
  - Overdose [Unknown]
  - Suicide attempt [Unknown]

NARRATIVE: CASE EVENT DATE: 20230516
